FAERS Safety Report 18886148 (Version 1)
Quarter: 2021Q1

REPORT INFORMATION
  Report Type: Spontaneous
  Country: FR (occurrence: FR)
  Receive Date: 20210212
  Receipt Date: 20210212
  Transmission Date: 20210420
  Serious: Yes (Hospitalization)
  Sender: FDA-Public Use
  Company Number: FR-TEVA-2021-FR-1878319

PATIENT
  Age: 59 Year
  Sex: Female
  Weight: 70 kg

DRUGS (14)
  1. APREPITANT. [Concomitant]
     Active Substance: APREPITANT
  2. DIOSMECTITE [Concomitant]
     Active Substance: MONTMORILLONITE
  3. HOLOXAN 2 G, LYOPHILISAT POUR SOLUTION INJECTABLE [Suspect]
     Active Substance: IFOSFAMIDE
     Indication: PHYLLODES TUMOUR
     Dosage: 4400 MG
     Route: 042
     Dates: start: 20201130, end: 20201201
  4. ONDANSETRON [Concomitant]
     Active Substance: ONDANSETRON
  5. MESNA. [Concomitant]
     Active Substance: MESNA
     Indication: PROPHYLAXIS
     Dosage: 5307 MG
     Route: 042
     Dates: start: 20201130, end: 20201201
  6. MORPHINE [Concomitant]
     Active Substance: MORPHINE
  7. METHYLPREDNISOLONE. [Concomitant]
     Active Substance: METHYLPREDNISOLONE
  8. PARACETAMOL [Concomitant]
     Active Substance: ACETAMINOPHEN
  9. PHLOROGLUCINOL ANHYDRE [Concomitant]
     Active Substance: PHLOROGLUCINOL
  10. IMOVANE [Concomitant]
     Active Substance: ZOPICLONE
  11. RACECADOTRIL [Concomitant]
     Active Substance: RACECADOTRIL
  12. PRAZEPAM [Concomitant]
     Active Substance: PRAZEPAM
  13. DOXORUBICINE [Suspect]
     Active Substance: DOXORUBICIN
     Indication: PHYLLODES TUMOUR
     Dosage: 35 MG
     Route: 042
     Dates: start: 20201130, end: 20201201
  14. PANTOPRAZOLE [Concomitant]
     Active Substance: PANTOPRAZOLE
     Dosage: 40 MG

REACTIONS (1)
  - Encephalopathy [Recovered/Resolved]

NARRATIVE: CASE EVENT DATE: 20201201
